FAERS Safety Report 15390273 (Version 1)
Quarter: 2018Q3

REPORT INFORMATION
  Report Type: Spontaneous
  Country: MX (occurrence: MX)
  Receive Date: 20180908
  Receipt Date: 20180908
  Transmission Date: 20181010
  Serious: Yes (Disabling)
  Sender: FDA-Public Use
  Company Number: None

PATIENT
  Age: 24 Year
  Sex: Female
  Weight: 60 kg

DRUGS (1)
  1. LURMIVI (CLINDAMYCIN\FLUCONAZOLE\TINIDAZOLE) [Suspect]
     Active Substance: CLINDAMYCIN\FLUCONAZOLE\TINIDAZOLE
     Indication: VAGINAL INFECTION
     Dosage: ?          QUANTITY:4 TABLET(S);?
     Route: 048
     Dates: start: 20180813, end: 20180814

REACTIONS (12)
  - Hypoaesthesia [None]
  - Hyperhidrosis [None]
  - Feeling of body temperature change [None]
  - Dysgeusia [None]
  - Tremor [None]
  - Aphasia [None]
  - Anxiety [None]
  - Dehydration [None]
  - Dysphagia [None]
  - Dry mouth [None]
  - Nausea [None]
  - Asthenia [None]

NARRATIVE: CASE EVENT DATE: 20180814
